FAERS Safety Report 5323599-X (Version None)
Quarter: 2007Q2

REPORT INFORMATION
  Report Type: 
  Country: None (occurrence: None)
  Receive Date: 20070509
  Receipt Date: 20070509
  Transmission Date: 20071010
  Serious: Yes (Life-Threatening, Hospitalization)
  Sender: FDA-Public Use
  Company Number: None

PATIENT
  Age: 64 Year
  Sex: Male
  Weight: 88.4514 kg

DRUGS (2)
  1. BACITRACIN ZINC [Suspect]
     Indication: BIOPSY SKIN
     Dosage: VERY SMALL AMOUNT ONCE
     Dates: start: 20070118
  2. TRIPLE ANTIBIOTIC [Suspect]
     Indication: HAEMORRHOIDS
     Dosage: SMALL AMOUNT ONCE
     Dates: start: 20070419

REACTIONS (6)
  - ANAPHYLACTOID SHOCK [None]
  - DRUG HYPERSENSITIVITY [None]
  - HYPOTENSION [None]
  - IMPAIRED DRIVING ABILITY [None]
  - LOSS OF CONSCIOUSNESS [None]
  - PRESYNCOPE [None]
